FAERS Safety Report 5809301-3 (Version None)
Quarter: 2008Q3

REPORT INFORMATION
  Report Type: 
  Country: None (occurrence: None)
  Receive Date: 20080714
  Receipt Date: 20080709
  Transmission Date: 20090109
  Serious: No
  Sender: FDA-Public Use
  Company Number: US-BOEHRINGER INGELHEIM GMBH, GERMANY-2008-BP-08674BP

PATIENT
  Sex: Male
  Weight: 72 kg

DRUGS (4)
  1. FLOMAX [Suspect]
     Indication: BENIGN PROSTATIC HYPERPLASIA
     Route: 048
     Dates: end: 20080601
  2. FLOMAX [Suspect]
     Indication: MICTURITION DISORDER
  3. VYTORIN [Concomitant]
     Dates: start: 20070822
  4. ASPIRIN [Concomitant]
     Dates: start: 20061109

REACTIONS (3)
  - HEADACHE [None]
  - POLLAKIURIA [None]
  - RASH [None]
